FAERS Safety Report 12721575 (Version 1)
Quarter: 2016Q3

REPORT INFORMATION
  Report Type: Other
  Country: US (occurrence: US)
  Receive Date: 20160907
  Receipt Date: 20160907
  Transmission Date: 20161109
  Serious: No
  Sender: FDA-Public Use
  Company Number: US-COL_22183_2016

PATIENT
  Sex: Female

DRUGS (3)
  1. COLGATE TOTAL DAILY REPAIR [Suspect]
     Active Substance: SODIUM FLUORIDE\TRICLOSAN
     Indication: PRODUCT USED FOR UNKNOWN INDICATION
     Dosage: WHOLE HEAD OF HER TOOTHBRUSH/TID/
     Route: 048
     Dates: end: 20160221
  2. COLGATE TOTAL ADVANCED CLEAN [Suspect]
     Active Substance: SODIUM FLUORIDE\TRICLOSAN
     Indication: PRODUCT USED FOR UNKNOWN INDICATION
     Dosage: WHOLE HEAD OF HER TOOTHBRUSH/TID/
     Route: 048
     Dates: start: 2015, end: 201508
  3. COLGATE TOTAL CLEAN MINT [Suspect]
     Active Substance: SODIUM FLUORIDE\TRICLOSAN
     Indication: PRODUCT USED FOR UNKNOWN INDICATION
     Dosage: WHOLE HEAD OF HER TOOTHBRUSH/TID/
     Route: 048
     Dates: end: 201508

REACTIONS (5)
  - Gingival discomfort [None]
  - Gingival pain [Not Recovered/Not Resolved]
  - Oral disorder [Not Recovered/Not Resolved]
  - Product quality issue [Unknown]
  - Tooth disorder [Not Recovered/Not Resolved]

NARRATIVE: CASE EVENT DATE: 201508
